FAERS Safety Report 11483671 (Version 1)
Quarter: 2015Q3

REPORT INFORMATION
  Report Type: Spontaneous
  Country: US (occurrence: US)
  Receive Date: 20150903
  Receipt Date: 20150903
  Transmission Date: 20151125
  Serious: Yes (Other)
  Sender: FDA-Public Use
  Company Number: US-ELI_LILLY_AND_COMPANY-US201207005563

PATIENT
  Age: 80 Year
  Sex: Female

DRUGS (3)
  1. CYMBALTA [Suspect]
     Active Substance: DULOXETINE HYDROCHLORIDE
     Indication: DEPRESSION
     Dosage: 30 MG, SINGLE
  2. DIGOXIN. [Concomitant]
     Active Substance: DIGOXIN
  3. MELLARIL [Concomitant]
     Active Substance: THIORIDAZINE HYDROCHLORIDE

REACTIONS (3)
  - Diarrhoea [Recovered/Resolved]
  - Suicidal ideation [Recovered/Resolved]
  - Abdominal discomfort [Recovered/Resolved]
